FAERS Safety Report 24898255 (Version 1)
Quarter: 2025Q1

REPORT INFORMATION
  Report Type: Spontaneous
  Country: CA (occurrence: CA)
  Receive Date: 20250129
  Receipt Date: 20250129
  Transmission Date: 20250409
  Serious: Yes (Other)
  Sender: CSL BEHRING
  Company Number: CA-BEH-2025193558

PATIENT
  Age: 42 Year
  Sex: Male

DRUGS (3)
  1. HUMAN IMMUNOGLOBULIN G [Suspect]
     Active Substance: HUMAN IMMUNOGLOBULIN G
     Indication: Primary immunodeficiency syndrome
     Dosage: 10 G, QW
     Route: 065
  2. COLISTIN [Concomitant]
     Active Substance: COLISTIN
     Indication: Pulmonary fibrosis
     Route: 065
  3. COLISTIN [Concomitant]
     Active Substance: COLISTIN
     Indication: Infection
     Route: 065

REACTIONS (2)
  - Infection [Unknown]
  - Pulmonary fibrosis [Unknown]
